FAERS Safety Report 15602932 (Version 2)
Quarter: 2020Q2

REPORT INFORMATION
  Report Type: Report from Study
  Country: AU (occurrence: AU)
  Receive Date: 20181109
  Receipt Date: 20200515
  Transmission Date: 20200713
  Serious: Yes (Hospitalization, Other)
  Sender: FDA-Public Use
  Company Number: AU-JNJFOC-20181046162

PATIENT
  Sex: Male

DRUGS (1)
  1. REMICADE [Suspect]
     Active Substance: INFLIXIMAB
     Indication: COLITIS ULCERATIVE
     Route: 042
     Dates: start: 20180829

REACTIONS (3)
  - Cerebral haemorrhage [Unknown]
  - Brain neoplasm [Unknown]
  - Thrombosis [Unknown]

NARRATIVE: CASE EVENT DATE: 2018
